FAERS Safety Report 20690336 (Version 1)
Quarter: 2022Q2

REPORT INFORMATION
  Report Type: Spontaneous
  Country: SE (occurrence: SE)
  Receive Date: 20220408
  Receipt Date: 20220408
  Transmission Date: 20220721
  Serious: Yes (Other)
  Sender: FDA-Public Use
  Company Number: None

PATIENT
  Age: 37 Year
  Sex: Female

DRUGS (2)
  1. DIAZEPAM [Suspect]
     Active Substance: DIAZEPAM
     Indication: Claustrophobia
     Dosage: DIAZEPAM INJECTION BP 5 MG / ML SOLUTION FOR INJECTION
     Route: 042
     Dates: start: 20220304, end: 20220304
  2. DIAZEPAM [Suspect]
     Active Substance: DIAZEPAM
     Indication: Magnetic resonance imaging

REACTIONS (3)
  - Venous thrombosis [Unknown]
  - Injection site pain [Unknown]
  - Thrombophlebitis [Unknown]

NARRATIVE: CASE EVENT DATE: 20220304
